FAERS Safety Report 20742977 (Version 1)
Quarter: 2022Q2

REPORT INFORMATION
  Report Type: Other
  Country: CA (occurrence: CA)
  Receive Date: 20220425
  Receipt Date: 20220425
  Transmission Date: 20220721
  Serious: Yes (Other)
  Sender: FDA-Public Use
  Company Number: CA-APOTEX-2022AP005257

PATIENT
  Age: 62 Year
  Sex: Female

DRUGS (12)
  1. PACLITAXEL [Suspect]
     Active Substance: PACLITAXEL
     Indication: Vulvar adenocarcinoma
     Dosage: 175 MILLIGRAM/SQ. METER, Q.WK.
     Route: 042
  2. PACLITAXEL [Suspect]
     Active Substance: PACLITAXEL
     Indication: Vulval disorder
  3. PACLITAXEL [Suspect]
     Active Substance: PACLITAXEL
     Indication: Metastases to liver
  4. ZOLEDRONIC ACID [Suspect]
     Active Substance: ZOLEDRONIC ACID
     Indication: Vulval disorder
     Dosage: 4 MILLIGRAM
     Route: 042
  5. PERTUZUMAB [Suspect]
     Active Substance: PERTUZUMAB
     Indication: Vulval disorder
     Dosage: 420 MILLIGRAM, 1 EVERY 3 WEEKS
     Route: 042
  6. TRASTUZUMAB [Suspect]
     Active Substance: TRASTUZUMAB
     Indication: Vulval disorder
     Dosage: 6.0 MILLIGRAM/KILOGRAM, 1 EVERY 3 WEEKS
     Route: 042
  7. PERTUZUMAB [Concomitant]
     Active Substance: PERTUZUMAB
     Indication: Vulvar adenocarcinoma
     Dosage: 420 MILLIGRAM, Q.3W
     Route: 042
  8. PERTUZUMAB [Concomitant]
     Active Substance: PERTUZUMAB
     Indication: Vulval cancer
  9. TRASTUZUMAB [Concomitant]
     Active Substance: TRASTUZUMAB
     Indication: Vulvar adenocarcinoma
     Dosage: 6 MILLIGRAM/KILOGRAM, Q.3W
     Route: 042
  10. TRASTUZUMAB [Concomitant]
     Active Substance: TRASTUZUMAB
     Indication: Vulval cancer
  11. ZOLEDRONIC ACID [Concomitant]
     Active Substance: ZOLEDRONIC ACID
     Indication: Vulvar adenocarcinoma
     Dosage: 4 MILLIGRAM, 1 EVERY 3 MONTHS
     Route: 042
  12. ZOLEDRONIC ACID [Concomitant]
     Active Substance: ZOLEDRONIC ACID
     Indication: Metastases to bone

REACTIONS (2)
  - Product use in unapproved indication [Unknown]
  - Neuropathy peripheral [Unknown]
